FAERS Safety Report 8823534 (Version 1)
Quarter: 2012Q4

REPORT INFORMATION
  Report Type: 
  Country: US (occurrence: US)
  Receive Date: 20121003
  Receipt Date: 20121003
  Transmission Date: 20130627
  Serious: No
  Sender: FDA-Public Use
  Company Number: US-ASTRAZENECA-2012SE75191

PATIENT
  Sex: Female

DRUGS (2)
  1. NEXIUM [Suspect]
     Route: 048
     Dates: start: 2002
  2. NEXIUM [Suspect]
     Dosage: NEKSIUM (ACQUIRED FROM CANADA ONLINE PHARMACY)
     Route: 048

REACTIONS (1)
  - Polyp [Unknown]
